FAERS Safety Report 20992791 (Version 2)
Quarter: 2022Q2

REPORT INFORMATION
  Report Type: Spontaneous
  Country: BR (occurrence: BR)
  Receive Date: 20220622
  Receipt Date: 20220628
  Transmission Date: 20220720
  Serious: Yes (Other)
  Sender: FDA-Public Use
  Company Number: BR-PFIZER INC-202200857285

PATIENT
  Age: 65 Year
  Sex: Female

DRUGS (6)
  1. LORAZEPAM [Suspect]
     Active Substance: LORAZEPAM
     Indication: Panic disorder
     Dosage: UNK (SINCE 33 YEARS OLD)
  2. LORAZEPAM [Suspect]
     Active Substance: LORAZEPAM
     Indication: Anxiety
  3. ENALAPRIL [Concomitant]
     Active Substance: ENALAPRIL
     Indication: Blood pressure increased
     Dosage: 10 MG, 1X/DAY (AT NIGHT)
  4. PROPRANOLOL [Concomitant]
     Active Substance: PROPRANOLOL HYDROCHLORIDE
     Indication: Heart rate increased
     Dosage: UNK, 1X/DAY (IN THE MORNING)
  5. VITAMIN D NOS [Concomitant]
     Active Substance: VITAMIN D NOS
     Indication: Vitamin supplementation
     Dosage: UNK, 1X/DAY (IN THE MORNING)
  6. AMITRIPTYLINE HYDROCHLORIDE [Concomitant]
     Active Substance: AMITRIPTYLINE HYDROCHLORIDE
     Indication: Anxiety
     Dosage: UNK, 1X/DAY (AT NIGHT)

REACTIONS (5)
  - Drug dependence [Not Recovered/Not Resolved]
  - Blood pressure increased [Recovered/Resolved]
  - Loss of personal independence in daily activities [Recovered/Resolved]
  - Fear [Recovered/Resolved]
  - Malaise [Not Recovered/Not Resolved]

NARRATIVE: CASE EVENT DATE: 20220601
